FAERS Safety Report 13940901 (Version 5)
Quarter: 2017Q4

REPORT INFORMATION
  Report Type: Report from Study
  Country: US (occurrence: US)
  Receive Date: 20170906
  Receipt Date: 20171103
  Transmission Date: 20180320
  Serious: Yes (Hospitalization, Other)
  Sender: FDA-Public Use
  Company Number: US-BRISTOL-MYERS SQUIBB COMPANY-BMS-2017-048485

PATIENT
  Sex: Male

DRUGS (1)
  1. NIVOLUMAB [Suspect]
     Active Substance: NIVOLUMAB
     Indication: RENAL CELL CARCINOMA
     Dosage: UNK
     Route: 065

REACTIONS (12)
  - Malignant neoplasm progression [Unknown]
  - Skin exfoliation [Recovering/Resolving]
  - Libido decreased [Unknown]
  - Weight increased [Recovered/Resolved]
  - Constipation [Recovering/Resolving]
  - Thyroid function test abnormal [Unknown]
  - Nasopharyngitis [Recovering/Resolving]
  - Hypoaesthesia [Recovered/Resolved]
  - Fatigue [Unknown]
  - Pneumonia [Unknown]
  - Seizure [Unknown]
  - Hemiparesis [Unknown]
